FAERS Safety Report 5741149-0 (Version None)
Quarter: 2008Q2

REPORT INFORMATION
  Report Type: 
  Country: None (occurrence: None)
  Receive Date: 20080514
  Receipt Date: 20080501
  Transmission Date: 20081010
  Serious: Yes (Hospitalization)
  Sender: FDA-Public Use
  Company Number: 2008AL003092

PATIENT
  Sex: Female
  Weight: 74.8435 kg

DRUGS (1)
  1. DIGOXIN [Suspect]
     Indication: PALPITATIONS
     Dosage: 0.125 MG DAILY, PO
     Route: 048

REACTIONS (1)
  - HOSPITALISATION [None]
